FAERS Safety Report 4960366-0 (Version None)
Quarter: 2006Q1

REPORT INFORMATION
  Report Type: 
  Country: None (occurrence: None)
  Receive Date: 20060328
  Receipt Date: 20060314
  Transmission Date: 20060701
  Serious: Yes (Hospitalization)
  Sender: FDA-Public Use
  Company Number: DEU-2005-0001385

PATIENT
  Age: 56 Year
  Sex: Male
  Weight: 107 kg

DRUGS (10)
  1. NALOXONE [Suspect]
     Indication: BACK PAIN
     Dosage: 20 MG, BID, ORAL
     Route: 048
     Dates: start: 20050214, end: 20050421
  2. TORSEMIDE [Concomitant]
  3. RAMIPRIL [Concomitant]
  4. BISOPROLOL FUMARATE [Concomitant]
  5. SIMVASTATIN [Concomitant]
  6. TIMO-COMOD (TIMOLOL MALEATE) [Concomitant]
  7. CITALOPRAM (CITALOPRAM) [Concomitant]
  8. DOLO POSTERINE (CINCHOCAINE HYDROCHLORIDE, ALLANTOIN, DIPHENYLPYRALINE [Concomitant]
  9. POSTERISAN FORTE (HYDROCORTISONE, PHENOL, LANOLIN, PARAFFIN SOFT, ESCH [Concomitant]
  10. SULPIRIDE (SULPIRIDE) [Concomitant]

REACTIONS (1)
  - GASTROENTERITIS [None]
